FAERS Safety Report 10525781 (Version 1)
Quarter: 2014Q4

REPORT INFORMATION
  Report Type: Report from Study
  Country: JP (occurrence: JP)
  Receive Date: 20141017
  Receipt Date: 20141017
  Transmission Date: 20150528
  Serious: Yes (Other)
  Sender: FDA-Public Use
  Company Number: PHHY2014JP134354

PATIENT
  Age: 29 Year
  Sex: Male

DRUGS (32)
  1. CLOZARIL [Suspect]
     Active Substance: CLOZAPINE
     Indication: SCHIZOPHRENIA, DISORGANISED TYPE
     Dosage: 12.5 MG, DAILY
     Route: 048
     Dates: start: 20121114, end: 20121114
  2. CLOZARIL [Suspect]
     Active Substance: CLOZAPINE
     Dosage: 50 MG, DAILY
     Route: 048
     Dates: start: 20121118, end: 20121120
  3. CLOZARIL [Suspect]
     Active Substance: CLOZAPINE
     Dosage: 150 MG, DAILY
     Route: 048
     Dates: start: 20121226, end: 20130108
  4. POTACOL-R [Concomitant]
     Dosage: 500 ML, UNK
     Route: 065
     Dates: end: 20121218
  5. SOLDEM 3A [Concomitant]
     Active Substance: CARBOHYDRATES\POTASSIUM CHLORIDE\SODIUM CHLORIDE\SODIUM LACTATE
     Indication: PRODUCT USED FOR UNKNOWN INDICATION
     Dosage: 500 ML, UNK
     Route: 065
     Dates: start: 20121126, end: 20121211
  6. BENZALIN [Concomitant]
     Active Substance: NITRAZEPAM
     Indication: SCHIZOPHRENIA, DISORGANISED TYPE
     Dosage: 10 MG, UNK
     Route: 048
     Dates: end: 20130131
  7. CLOZARIL [Suspect]
     Active Substance: CLOZAPINE
     Dosage: 25 MG, DAILY
     Route: 048
     Dates: start: 20121115, end: 20121117
  8. CLOZARIL [Suspect]
     Active Substance: CLOZAPINE
     Dosage: 75 MG, DAILY
     Route: 048
     Dates: start: 20121121, end: 20121123
  9. PURSENNIDE [Concomitant]
     Active Substance: SENNOSIDES A AND B
     Indication: SCHIZOPHRENIA, DISORGANISED TYPE
     Dosage: 24 MG, UNK
     Route: 048
     Dates: start: 20130101
  10. MAGLAX [Concomitant]
     Active Substance: MAGNESIUM OXIDE
     Dosage: 1320 MG, UNK
     Route: 048
  11. HALCION [Concomitant]
     Active Substance: TRIAZOLAM
     Indication: SCHIZOPHRENIA, DISORGANISED TYPE
     Dosage: 0.25 MG, UNK
     Route: 048
     Dates: start: 20121114, end: 20121210
  12. PANTOL [Concomitant]
     Active Substance: DEXPANTHENOL
     Indication: PRODUCT USED FOR UNKNOWN INDICATION
     Dosage: 1500 MG, UNK
     Dates: start: 20121129
  13. PANTOL [Concomitant]
     Active Substance: DEXPANTHENOL
     Dosage: 2000 MG, UNK
  14. ALINAMIN F//FURSULTIAMINE HYDROCHLORIDE [Concomitant]
     Indication: PRODUCT USED FOR UNKNOWN INDICATION
     Dosage: 50 MG, UNK
     Route: 065
     Dates: start: 20121201, end: 20121211
  15. CLOZARIL [Suspect]
     Active Substance: CLOZAPINE
     Dosage: 125 MG, DAILY
     Route: 048
     Dates: start: 20121219, end: 20121225
  16. CLOZARIL [Suspect]
     Active Substance: CLOZAPINE
     Dosage: 150 MG, DAILY
     Route: 048
     Dates: start: 20130206
  17. TASMOLIN [Concomitant]
     Active Substance: BIPERIDEN
     Indication: SCHIZOPHRENIA, DISORGANISED TYPE
     Dosage: 3 MG, UNK
     Route: 048
     Dates: start: 20121114
  18. ZOSYN [Concomitant]
     Active Substance: PIPERACILLIN SODIUM\TAZOBACTAM SODIUM
     Indication: PRODUCT USED FOR UNKNOWN INDICATION
     Dosage: 4.5 MG, UNK
     Route: 065
     Dates: start: 20121125, end: 20121129
  19. MEROPEN [Concomitant]
     Active Substance: MEROPENEM
     Indication: PRODUCT USED FOR UNKNOWN INDICATION
     Dosage: 500 MG, UNK
     Route: 065
     Dates: start: 20121130, end: 20121211
  20. POTACOL-R [Concomitant]
     Indication: PRODUCT USED FOR UNKNOWN INDICATION
     Dosage: 500 ML, UNK
     Route: 065
     Dates: start: 20121126
  21. CLOZARIL [Suspect]
     Active Substance: CLOZAPINE
     Dosage: 100 MG, DAILY
     Route: 048
     Dates: start: 20121124, end: 20121218
  22. CLOZARIL [Suspect]
     Active Substance: CLOZAPINE
     Dosage: 175 MG, DAILY
     Route: 048
     Dates: start: 20130109, end: 20130115
  23. MAGLAX [Concomitant]
     Active Substance: MAGNESIUM OXIDE
     Indication: SCHIZOPHRENIA, DISORGANISED TYPE
     Dosage: 990 MG, UNK
     Route: 048
     Dates: start: 20121114
  24. SILECE [Concomitant]
     Active Substance: FLUNITRAZEPAM
     Dosage: 1 MG, UNK
     Route: 048
     Dates: end: 20121130
  25. TASMOLIN [Concomitant]
     Active Substance: BIPERIDEN
     Dosage: 2 MG, UNK
     Dates: end: 20131220
  26. AMOBAN [Concomitant]
     Active Substance: ZOPICLONE
     Indication: SCHIZOPHRENIA, DISORGANISED TYPE
     Dosage: 10 MG, UNK
     Route: 048
     Dates: start: 20121211
  27. DEXALTIN [Concomitant]
     Active Substance: DEXAMETHASONE
     Indication: PRODUCT USED FOR UNKNOWN INDICATION
     Dosage: UNK
     Route: 065
     Dates: start: 20130208, end: 20130214
  28. PANTOL [Concomitant]
     Active Substance: DEXPANTHENOL
     Dosage: 1000 MG, UNK
     Dates: end: 20121218
  29. MAGLAX [Concomitant]
     Active Substance: MAGNESIUM OXIDE
     Dosage: 660 MG, UNK
     Route: 048
  30. SILECE [Concomitant]
     Active Substance: FLUNITRAZEPAM
     Indication: SCHIZOPHRENIA, DISORGANISED TYPE
     Dosage: 2 MG, UNK
     Route: 048
  31. POTACOL-R [Concomitant]
     Dosage: 1000 ML, UNK
     Route: 065
  32. CLOZARIL [Suspect]
     Active Substance: CLOZAPINE
     Dosage: 200 MG, DAILY
     Route: 048
     Dates: start: 20130116, end: 20130205

REACTIONS (4)
  - Seizure [Recovered/Resolved]
  - Feeding disorder [Recovered/Resolved]
  - Ascites [Unknown]
  - Pyrexia [Recovered/Resolved]

NARRATIVE: CASE EVENT DATE: 20121124
